FAERS Safety Report 8876400 (Version 3)
Quarter: 2013Q1

REPORT INFORMATION
  Report Type: Report from Study
  Country: JP (occurrence: JP)
  Receive Date: 20121031
  Receipt Date: 20130325
  Transmission Date: 20140127
  Serious: Yes (Other)
  Sender: FDA-Public Use
  Company Number: JP-VERTEX PHARMACEUTICAL INC.-AE-2012-011643

PATIENT
  Age: 58 Year
  Sex: Female

DRUGS (10)
  1. VX-950 (TELAPREVIR) [Suspect]
     Indication: CHRONIC HEPATITIS C
     Dosage: 1500 MG, QD
     Route: 048
     Dates: start: 20120411, end: 20120618
  2. REBETOL [Suspect]
     Indication: CHRONIC HEPATITIS C
     Dosage: 400 MG, QD
     Route: 048
     Dates: start: 20120411, end: 20120516
  3. REBETOL [Suspect]
     Dosage: 200 MG, QD
     Route: 048
     Dates: start: 20120517, end: 20120722
  4. REBETOL [Suspect]
     Dosage: 400 MG, QD
     Route: 048
     Dates: start: 20120723, end: 20120923
  5. PEGINTERFERON ALFA-2B [Suspect]
     Indication: CHRONIC HEPATITIS C
     Dosage: 1.5 ?G/KG, QW
     Route: 058
     Dates: start: 20120411, end: 20120918
  6. FASTIC [Concomitant]
     Dosage: 90 MG, QD
     Route: 048
  7. THYRADIN S [Concomitant]
     Dosage: 125 ?G, QD
     Route: 048
  8. ADALAT CR [Concomitant]
     Dosage: 20 MG, QD
     Route: 048
  9. ADALAT L [Concomitant]
     Dosage: 10 MG, QD
     Route: 048
  10. TENORMIN [Concomitant]
     Dosage: 50 MG, QD
     Route: 048

REACTIONS (1)
  - Drug eruption [Recovered/Resolved]
